FAERS Safety Report 20888730 (Version 2)
Quarter: 2022Q2

REPORT INFORMATION
  Report Type: Spontaneous
  Country: JP (occurrence: JP)
  Receive Date: 20220529
  Receipt Date: 20220630
  Transmission Date: 20220720
  Serious: Yes (Hospitalization, Other)
  Sender: FDA-Public Use
  Company Number: JP-TAKEDA-2022TJP052095

PATIENT
  Age: 65 Year
  Sex: Female

DRUGS (1)
  1. TRINTELLIX [Suspect]
     Active Substance: VORTIOXETINE HYDROBROMIDE
     Indication: Depression
     Dosage: UNK, QD
     Route: 065

REACTIONS (5)
  - Suicide attempt [Recovered/Resolved]
  - Hallucination, auditory [Recovering/Resolving]
  - Activation syndrome [Unknown]
  - Fracture [Unknown]
  - Delusion [Recovering/Resolving]
